FAERS Safety Report 25353768 (Version 1)
Quarter: 2025Q2

REPORT INFORMATION
  Report Type: Spontaneous
  Country: IQ (occurrence: IQ)
  Receive Date: 20250523
  Receipt Date: 20250523
  Transmission Date: 20250716
  Serious: Yes (Other)
  Sender: TAKEDA
  Company Number: IQ-TAKEDA-2025TUS047563

PATIENT
  Age: 28 Year
  Sex: Female

DRUGS (1)
  1. ICLUSIG [Suspect]
     Active Substance: PONATINIB HYDROCHLORIDE
     Indication: Chronic myeloid leukaemia
     Dosage: UNK UNK, QD

REACTIONS (1)
  - Ichthyosis [Not Recovered/Not Resolved]

NARRATIVE: CASE EVENT DATE: 20250420
